FAERS Safety Report 19731451 (Version 16)
Quarter: 2025Q2

REPORT INFORMATION
  Report Type: Report from Study
  Country: CL (occurrence: CL)
  Receive Date: 20210820
  Receipt Date: 20250516
  Transmission Date: 20250717
  Serious: Yes (Hospitalization, Other)
  Sender: JOHNSON AND JOHNSON
  Company Number: CL-JNJFOC-20210830173

PATIENT
  Age: 23 Year
  Sex: Female

DRUGS (4)
  1. SIMPONI [Suspect]
     Active Substance: GOLIMUMAB
     Indication: Rheumatoid arthritis
     Route: 058
     Dates: start: 20200617
  2. SIMPONI [Suspect]
     Active Substance: GOLIMUMAB
     Dosage: LAST ADMINISTRATION WAS ON 17-MAY-2021
     Route: 058
  3. SIMPONI [Suspect]
     Active Substance: GOLIMUMAB
     Route: 041
  4. SIMPONI [Suspect]
     Active Substance: GOLIMUMAB
     Route: 058

REACTIONS (14)
  - Choking [Unknown]
  - Vomiting [Unknown]
  - Drowning [Unknown]
  - Throat cancer [Not Recovered/Not Resolved]
  - Thyroid cancer [Unknown]
  - Rheumatoid arthritis [Not Recovered/Not Resolved]
  - Body temperature increased [Unknown]
  - Dizziness [Unknown]
  - Nausea [Unknown]
  - Headache [Unknown]
  - Contusion [Unknown]
  - Fibromyalgia [Unknown]
  - Hot flush [Unknown]
  - Flushing [Unknown]

NARRATIVE: CASE EVENT DATE: 20200617
